FAERS Safety Report 10227141 (Version 1)
Quarter: 2014Q2

REPORT INFORMATION
  Report Type: Spontaneous
  Country: US (occurrence: None)
  Receive Date: 20140609
  Receipt Date: 20140609
  Transmission Date: 20141212
  Serious: No
  Sender: FDA-Public Use
  Company Number: None

PATIENT
  Age: 81 Year
  Sex: Male

DRUGS (2)
  1. AFINITOR [Suspect]
     Indication: NEOPLASM MALIGNANT
     Route: 048
     Dates: start: 20140114, end: 20140521
  2. AFINITOR [Suspect]
     Route: 048
     Dates: start: 20140114, end: 20140521

REACTIONS (6)
  - Blister [None]
  - Dry skin [None]
  - Acne [None]
  - Decreased appetite [None]
  - Stomatitis [None]
  - Dyspnoea [None]
